FAERS Safety Report 22376608 (Version 4)
Quarter: 2023Q2

REPORT INFORMATION
  Report Type: Spontaneous
  Country: US (occurrence: US)
  Receive Date: 20230528
  Receipt Date: 20230528
  Transmission Date: 20230722
  Serious: No
  Sender: FDA-Public Use
  Company Number: US-Dermavant-000584

PATIENT
  Age: 14 Year
  Sex: Female

DRUGS (3)
  1. VTAMA [Suspect]
     Active Substance: TAPINAROF
  2. OPZELURA [Suspect]
     Active Substance: RUXOLITINIB PHOSPHATE
  3. RINVOQ [Suspect]
     Active Substance: UPADACITINIB

REACTIONS (3)
  - Off label use [Unknown]
  - Folliculitis [Unknown]
  - Rash [Unknown]
